FAERS Safety Report 4767560-2 (Version None)
Quarter: 2005Q3

REPORT INFORMATION
  Report Type: 
  Country: None (occurrence: None)
  Receive Date: 20050913
  Receipt Date: 20050907
  Transmission Date: 20060218
  Serious: Yes (Death)
  Sender: FDA-Public Use
  Company Number: US-JNJFOC-20050901673

PATIENT
  Age: 39 Year
  Sex: Female

DRUGS (3)
  1. ACETAMINOPHEN/PSEUDOEPHEDRINE [Suspect]
     Indication: SUICIDE ATTEMPT
     Route: 048
  2. ACETAMINOPHEN/HYDROCODONE [Suspect]
     Route: 048
  3. ACETAMINOPHEN/HYDROCODONE [Suspect]
     Indication: SUICIDE ATTEMPT
     Route: 048

REACTIONS (17)
  - COAGULOPATHY [None]
  - COMPLETED SUICIDE [None]
  - DIALYSIS [None]
  - EPISTAXIS [None]
  - FLUID OVERLOAD [None]
  - FUNGAL SEPSIS [None]
  - HEART RATE INCREASED [None]
  - HEPATORENAL SYNDROME [None]
  - HYPERGLYCAEMIA [None]
  - HYPERTENSION [None]
  - HYPOGLYCAEMIA [None]
  - INTENTIONAL MISUSE [None]
  - MOUTH HAEMORRHAGE [None]
  - MULTI-ORGAN FAILURE [None]
  - PANCREATITIS [None]
  - PEPTIC ULCER HAEMORRHAGE [None]
  - PULMONARY OEDEMA [None]
